FAERS Safety Report 9422714 (Version 1)
Quarter: 2013Q3

REPORT INFORMATION
  Report Type: Spontaneous
  Country: DK (occurrence: CA)
  Receive Date: 20130726
  Receipt Date: 20130726
  Transmission Date: 20140515
  Serious: Yes (Other)
  Sender: FDA-Public Use
  Company Number: CA-FRI-1000047223

PATIENT
  Age: 5 Decade
  Sex: Female

DRUGS (2)
  1. ESCITALOPRAM [Suspect]
     Route: 048
  2. SAPHRIS [Suspect]
     Route: 048

REACTIONS (1)
  - Angle closure glaucoma [Unknown]
